FAERS Safety Report 9538520 (Version 1)
Quarter: 2013Q3

REPORT INFORMATION
  Report Type: Report from Study
  Country: CA (occurrence: CA)
  Receive Date: 20130920
  Receipt Date: 20130920
  Transmission Date: 20140515
  Serious: Yes (Other)
  Sender: FDA-Public Use
  Company Number: CA-JNJFOC-20130907890

PATIENT
  Age: 34 Year
  Sex: Female
  Weight: 82 kg

DRUGS (6)
  1. REMICADE [Suspect]
     Indication: CROHN^S DISEASE
     Route: 042
     Dates: start: 201309
  2. REMICADE [Suspect]
     Indication: CROHN^S DISEASE
     Route: 042
     Dates: start: 200809, end: 2013
  3. FLOVENT [Concomitant]
     Route: 065
  4. VENTOLIN [Concomitant]
     Route: 065
  5. CELEXA [Concomitant]
     Dosage: 40
     Route: 065
  6. MIN-OVRAL [Concomitant]
     Route: 065

REACTIONS (2)
  - Nephrolithiasis [Recovered/Resolved]
  - Gastrointestinal inflammation [Unknown]
